FAERS Safety Report 23792996 (Version 1)
Quarter: 2024Q2

REPORT INFORMATION
  Report Type: Spontaneous
  Country: AU (occurrence: AU)
  Receive Date: 20240429
  Receipt Date: 20240429
  Transmission Date: 20240716
  Serious: Yes (Death, Hospitalization, Other)
  Sender: FDA-Public Use
  Company Number: AU-GENERIC HEALTH PTY. LTD.-2024-03431

PATIENT
  Age: 57 Year
  Sex: Male

DRUGS (29)
  1. VORICONAZOLE [Suspect]
     Active Substance: VORICONAZOLE
     Indication: Endophthalmitis
     Dosage: 200 MG, BID
     Route: 048
  2. VORICONAZOLE [Suspect]
     Active Substance: VORICONAZOLE
     Indication: Scedosporium infection
     Dosage: 250 MG, BID (DOSE INCREASED)
     Route: 048
  3. VORICONAZOLE [Suspect]
     Active Substance: VORICONAZOLE
     Dosage: UNK, RECOMMENCED
     Route: 048
  4. TERBINAFINE [Suspect]
     Active Substance: TERBINAFINE
     Indication: Endophthalmitis
     Dosage: 250 MG, BID, SYSTEMIC ROUTE
     Route: 065
  5. TERBINAFINE [Suspect]
     Active Substance: TERBINAFINE
     Indication: Scedosporium infection
     Dosage: 250 MG, BID, SYSTEMIC ROUTE
     Route: 065
  6. TERBINAFINE [Suspect]
     Active Substance: TERBINAFINE
     Dosage: UNK, SYSTEMIC (RECOMMENCED)
     Route: 065
  7. AMPHOTERICIN B [Suspect]
     Active Substance: AMPHOTERICIN B
     Indication: Endophthalmitis
     Dosage: UNK, 100 UG PER 0.1 ML
     Route: 065
  8. AMPHOTERICIN B [Suspect]
     Active Substance: AMPHOTERICIN B
     Indication: Scedosporium infection
  9. VORICONAZOLE [Suspect]
     Active Substance: VORICONAZOLE
     Indication: Endophthalmitis
     Dosage: UNK
  10. VORICONAZOLE [Suspect]
     Active Substance: VORICONAZOLE
     Indication: Scedosporium infection
     Dosage: UNK, 100 UG/0.1ML
  11. VORICONAZOLE [Suspect]
     Active Substance: VORICONAZOLE
     Dosage: UNK, TWO FURTHER DOSES (100 UG PER 0.1 ML) ONE WEEK APART
  12. VORICONAZOLE [Suspect]
     Active Substance: VORICONAZOLE
     Dosage: UNK, 100 UG/0.1ML
  13. OLOROFIM [Suspect]
     Active Substance: OLOROFIM
     Indication: Endophthalmitis
     Dosage: 150 MG, QD, LOADING DOSE (SYSTEMIC)
     Route: 065
  14. OLOROFIM [Suspect]
     Active Substance: OLOROFIM
     Indication: Scedosporium infection
     Dosage: 90 MG, BID
     Route: 065
  15. OLOROFIM [Suspect]
     Active Substance: OLOROFIM
     Dosage: UNK
     Route: 065
  16. CASPOFUNGIN [Suspect]
     Active Substance: CASPOFUNGIN
     Indication: Endophthalmitis
     Dosage: UNK, 100 UG/0.1ML
     Route: 065
  17. CASPOFUNGIN [Suspect]
     Active Substance: CASPOFUNGIN
     Indication: Scedosporium infection
  18. TACROLIMUS [Concomitant]
     Active Substance: TACROLIMUS
     Indication: Immunosuppressant drug therapy
     Dosage: UNK
     Route: 065
  19. VALGANCICLOVIR [Concomitant]
     Active Substance: VALGANCICLOVIR
     Indication: Product used for unknown indication
     Dosage: UNK
     Route: 065
  20. SULFAMETHOXAZOLE\TRIMETHOPRIM [Concomitant]
     Active Substance: SULFAMETHOXAZOLE\TRIMETHOPRIM
     Indication: Product used for unknown indication
     Dosage: UNK
     Route: 065
  21. VANCOMYCIN [Concomitant]
     Active Substance: VANCOMYCIN
     Indication: Endophthalmitis
     Dosage: UNK
  22. VANCOMYCIN [Concomitant]
     Active Substance: VANCOMYCIN
     Indication: Scedosporium infection
  23. FOSCARNET [Concomitant]
     Active Substance: FOSCARNET
     Indication: Endophthalmitis
     Dosage: UNK
  24. FOSCARNET [Concomitant]
     Active Substance: FOSCARNET
     Indication: Scedosporium infection
  25. CEFTAZIDIME [Concomitant]
     Active Substance: CEFTAZIDIME
     Indication: Endophthalmitis
     Dosage: UNK
  26. CEFTAZIDIME [Concomitant]
     Active Substance: CEFTAZIDIME
     Indication: Scedosporium infection
  27. DIMETHICONE [Concomitant]
     Active Substance: DIMETHICONE
     Indication: Product used for unknown indication
     Dosage: UNK
     Route: 065
  28. MICAFUNGIN [Concomitant]
     Active Substance: MICAFUNGIN SODIUM
     Indication: Endophthalmitis
     Dosage: 300 MG (LOADING)
     Route: 065
  29. MICAFUNGIN [Concomitant]
     Active Substance: MICAFUNGIN SODIUM
     Indication: Scedosporium infection
     Dosage: 150 MG, QD
     Route: 065

REACTIONS (2)
  - Drug ineffective for unapproved indication [Fatal]
  - Off label use [Unknown]
